FAERS Safety Report 4777275-2 (Version None)
Quarter: 2005Q3

REPORT INFORMATION
  Report Type: 
  Country: None (occurrence: None)
  Receive Date: 20050923
  Receipt Date: 20050912
  Transmission Date: 20060218
  Serious: Yes (Other)
  Sender: FDA-Public Use
  Company Number: 2005AC01323

PATIENT
  Age: 15416 Day
  Sex: Female

DRUGS (10)
  1. SEROQUEL [Suspect]
     Route: 048
     Dates: start: 20050629, end: 20050725
  2. DIAZEPAM [Concomitant]
     Route: 048
  3. SEVREDOL [Concomitant]
     Route: 048
  4. NAPROXEN [Concomitant]
     Route: 048
  5. PANTOZOL [Concomitant]
     Route: 048
  6. NEURONTIN [Concomitant]
     Route: 048
  7. BACLOFEN [Concomitant]
     Route: 048
  8. HALOPERIDOL [Concomitant]
     Route: 048
  9. CITALOPRAM [Concomitant]
     Route: 048
  10. CLONAZEPAM [Concomitant]
     Route: 048

REACTIONS (1)
  - NEUTROPENIA [None]
